FAERS Safety Report 10344876 (Version 1)
Quarter: 2014Q3

REPORT INFORMATION
  Report Type: Spontaneous
  Country: AU (occurrence: AU)
  Receive Date: 20140728
  Receipt Date: 20140728
  Transmission Date: 20150326
  Serious: Yes (Hospitalization, Other)
  Sender: FDA-Public Use
  Company Number: AU-ROCHE-1437855

PATIENT
  Age: 18 Year
  Sex: Male

DRUGS (1)
  1. VALIUM [Suspect]
     Active Substance: DIAZEPAM
     Indication: MENTAL DISORDER
     Route: 065

REACTIONS (4)
  - Bipolar disorder [Unknown]
  - Depression [Unknown]
  - Overdose [Unknown]
  - Mental disorder [Unknown]

NARRATIVE: CASE EVENT DATE: 1991
